FAERS Safety Report 7520874-5 (Version None)
Quarter: 2011Q2

REPORT INFORMATION
  Report Type: 
  Country: None (occurrence: None)
  Receive Date: 20110603
  Receipt Date: 20101117
  Transmission Date: 20111010
  Serious: Yes (Other)
  Sender: FDA-Public Use
  Company Number: FR-BAYER-201047634GPV

PATIENT
  Age: 39 Year
  Sex: Female

DRUGS (4)
  1. DROSPIRENONE AND ETHINYL ESTRADIOL [Suspect]
     Indication: HYPERTRICHOSIS
     Dates: end: 20100901
  2. MIRENA [Suspect]
     Indication: CONTRACEPTION
     Dosage: 20 ?G (DAILY DOSE), CONT, INTRA-UTERINE
     Route: 015
     Dates: start: 20100901
  3. DROSPIRENONE AND ETHINYL ESTRADIOL [Suspect]
     Indication: ACNE
  4. DROSPIRENONE AND ETHINYL ESTRADIOL [Suspect]
     Indication: CONTRACEPTION

REACTIONS (1)
  - FOCAL NODULAR HYPERPLASIA [None]
